FAERS Safety Report 5217323-9 (Version None)
Quarter: 2007Q1

REPORT INFORMATION
  Report Type: 
  Country: None (occurrence: None)
  Receive Date: 20070124
  Receipt Date: 20060119
  Transmission Date: 20070707
  Serious: No
  Sender: FDA-Public Use
  Company Number: US-GLAXOSMITHKLINE-A0587770A

PATIENT
  Age: 50 Year
  Sex: Female

DRUGS (4)
  1. PAXIL CR [Suspect]
     Indication: DRUG USE FOR UNKNOWN INDICATION
     Dosage: 12.5MG THREE TIMES PER DAY
     Route: 048
     Dates: start: 20051214
  2. LORAZEPAM [Concomitant]
  3. PREDNISONE TAB [Concomitant]
  4. METFORMIN HCL [Concomitant]

REACTIONS (2)
  - GASTROINTESTINAL DISORDER [None]
  - SOMNOLENCE [None]
